FAERS Safety Report 7902026-X (Version None)
Quarter: 2011Q4

REPORT INFORMATION
  Report Type: 
  Country: None (occurrence: None)
  Receive Date: 20111108
  Receipt Date: 20111028
  Transmission Date: 20120403
  Serious: Yes (Hospitalization, Congenital Anomaly)
  Sender: FDA-Public Use
  Company Number: US-GLAXOSMITHKLINE-A0950652A

PATIENT
  Sex: Male

DRUGS (3)
  1. CLARITIN [Concomitant]
     Route: 064
  2. MULTI-VITAMINS [Concomitant]
     Indication: PRODUCT USED FOR UNKNOWN INDICATION
     Route: 064
  3. PAXIL [Suspect]
     Indication: PRODUCT USED FOR UNKNOWN INDICATION
     Route: 064
     Dates: end: 20051101

REACTIONS (1)
  - CRANIOSYNOSTOSIS [None]
